FAERS Safety Report 7898693-X (Version None)
Quarter: 2011Q4

REPORT INFORMATION
  Report Type: 
  Country: None (occurrence: None)
  Receive Date: 20111107
  Receipt Date: 20111026
  Transmission Date: 20120403
  Serious: Yes (Death, Other)
  Sender: FDA-Public Use
  Company Number: US-CELGENEUS-087-50794-11063432

PATIENT
  Sex: Male
  Weight: 59 kg

DRUGS (20)
  1. ITRACONAZOLE [Concomitant]
     Dosage: 200 MILLIGRAM
     Route: 048
     Dates: end: 20110617
  2. ALLOPURINOL [Concomitant]
     Dosage: 300 MILLIGRAM
     Route: 048
     Dates: end: 20110525
  3. MAGNESIUM SULFATE [Concomitant]
     Dosage: 900 MILLIGRAM
     Route: 048
     Dates: end: 20110620
  4. PLATELETS [Concomitant]
     Dosage: 10 UNITS
     Route: 041
     Dates: start: 20110520, end: 20110520
  5. VIDAZA [Suspect]
     Dosage: 75 MILLIGRAM/SQ. METER
     Route: 041
     Dates: start: 20110519, end: 20110525
  6. URSO 250 [Concomitant]
     Dosage: 300 MILLIGRAM
     Route: 048
     Dates: end: 20110525
  7. OMEPTOROL [Concomitant]
     Dosage: 20 MILLIGRAM
     Route: 048
     Dates: end: 20110620
  8. BACTRIM [Concomitant]
     Dosage: 20-40ML
     Route: 041
     Dates: start: 20110618, end: 20110619
  9. MYONAL [Concomitant]
     Dosage: 150 MILLIGRAM
     Route: 048
     Dates: end: 20110620
  10. IMMUNE GLOBULIN INTRAVENOUS (HUMAN) [Concomitant]
     Dosage: 5 GRAM
     Route: 041
     Dates: end: 20110608
  11. IMMUNE GLOBULIN (HUMAN) [Concomitant]
     Dosage: 5 GRAM
     Route: 041
     Dates: start: 20110618, end: 20110620
  12. PLATELETS [Concomitant]
     Dosage: 10 UNITS
     Route: 041
     Dates: start: 20110524, end: 20110524
  13. RED BLOOD CELLS [Concomitant]
     Dosage: 2 UNITS
     Route: 041
     Dates: start: 20110523, end: 20110523
  14. AMBISOME [Concomitant]
     Dosage: 150 MILLIGRAM
     Route: 041
     Dates: start: 20110618, end: 20110620
  15. LEVOFLOXACIN [Concomitant]
     Dosage: 500 MILLIGRAM
     Route: 048
     Dates: end: 20110602
  16. TEICOPLANIN [Concomitant]
     Dosage: 400 MILLIGRAM
     Route: 041
     Dates: start: 20110601, end: 20110620
  17. NEUTROGIN [Concomitant]
     Dosage: 100 MICROGRAM
     Route: 041
     Dates: start: 20110618, end: 20110620
  18. PLATELETS [Concomitant]
     Dosage: 10 UNITS
     Route: 041
     Dates: start: 20110522, end: 20110522
  19. MEROPENEM [Concomitant]
     Dosage: 1.5 GRAM
     Route: 041
     Dates: start: 20110521, end: 20110527
  20. CEFEPIME [Concomitant]
     Dosage: 2 GRAM
     Route: 041
     Dates: start: 20110531, end: 20110613

REACTIONS (7)
  - PYREXIA [None]
  - STAPHYLOCOCCAL SEPSIS [None]
  - INJECTION SITE ERYTHEMA [None]
  - DECREASED APPETITE [None]
  - SEPTIC SHOCK [None]
  - MALAISE [None]
  - ACUTE RESPIRATORY DISTRESS SYNDROME [None]
